FAERS Safety Report 15761793 (Version 2)
Quarter: 2019Q1

REPORT INFORMATION
  Report Type: Report from Study
  Country: GB (occurrence: GB)
  Receive Date: 20181226
  Receipt Date: 20190201
  Transmission Date: 20190417
  Serious: Yes (Hospitalization)
  Sender: FDA-Public Use
  Company Number: GB-VERTEX PHARMACEUTICALS-2018-009774

PATIENT
  Age: 43 Year
  Sex: Male
  Weight: 60 kg

DRUGS (27)
  1. RAMIPRIL. [Concomitant]
     Active Substance: RAMIPRIL
     Dosage: ONE TO BE TAKEN EACH DAY
  2. CREON [Concomitant]
     Active Substance: PANCRELIPASE AMYLASE\PANCRELIPASE LIPASE\PANCRELIPASE PROTEASE
  3. FORTISIP [Concomitant]
     Active Substance: CARBOHYDRATES\FATTY ACIDS\MINERALS\PROTEIN\VITAMINS
     Dosage: ONE BOTTLE FIVE TIMES A DAY.
  4. DORNASE ALFA. [Concomitant]
     Active Substance: DORNASE ALFA
     Dosage: ONE AMPOULES TO BE USED IN THE NEBULISER EACH DAY
     Route: 055
  5. URSODEOXYCHOLIC ACID APOTEX [Concomitant]
     Dosage: TWO CAPSULES TO BE TAKEN TWICE A DAY
  6. RIVAROXABAN [Concomitant]
     Active Substance: RIVAROXABAN
     Dosage: ONE TABLET TO BE TAKEN EACH DAY.
  7. COLISTIMETHATE                     /00013204/ [Concomitant]
     Active Substance: COLISTIMETHATE SODIUM
     Dosage: 2MILLION UNIT POWDER FOR SOLUTION FOR INJECTION VIALS, TID
  8. SERETIDE [Concomitant]
     Active Substance: FLUTICASONE PROPIONATE\SALMETEROL XINAFOATE
     Dosage: ONE DOSE TO BE INHALED TWICE A DAY
     Route: 055
  9. SALBUTAMOL [Concomitant]
     Active Substance: ALBUTEROL
     Dosage: 100MICROGRAMS/DOSE BREATH ACTUATED INHALER CFC FREE, WHEN REQUIRED.
     Route: 055
  10. OMEPRAZOLE                         /00661202/ [Concomitant]
     Active Substance: OMEPRAZOLE SODIUM
     Dosage: ONE CAPSULE TO BE TAKEN TWICE EACH DAY
  11. VITAMIN E                          /00110501/ [Concomitant]
     Active Substance: TOCOPHEROL
     Dosage: ONE CAPSULE TO BE TAKEN DAILY
  12. DOXYCYCLINE. [Concomitant]
     Active Substance: DOXYCYCLINE
     Dosage: ONE CAPSULE  TO BE TAKEN EACH DAY.
  13. CETIRIZINE [Concomitant]
     Active Substance: CETIRIZINE HYDROCHLORIDE
     Dosage: ONE TABLET TO BE TAKEN EACH DAY.
  14. VANTOBRA [Concomitant]
     Dosage: INHALE THE CONTENTS OF ONE VIAL TWICE A DAY VIA NEBULISER.
     Route: 055
  15. DESUNIN [Concomitant]
     Active Substance: CHOLECALCIFEROL
     Dosage: SIX TO BE TAKEN EACH DAY
  16. CALCITRIOL. [Concomitant]
     Active Substance: CALCITRIOL
     Dosage: THREE TO BE TAKEN EACH DAY
  17. BECLOMETASONE [Concomitant]
     Active Substance: BECLOMETHASONE DIPROPIONATE
     Dosage: TWO SPRAYS EACH NOSTRIL, BID
  18. DOCUSATE [Concomitant]
     Active Substance: DOCUSATE
     Dosage: TWO CAPSULES TO BE TAKEN TWICE A DAY.
  19. AZITHROMYCIN ANHYDROUS. [Concomitant]
     Active Substance: AZITHROMYCIN ANHYDROUS
     Dosage: ONE CAPSULE TO BE TAKEN DAILY.
  20. ORKAMBI [Suspect]
     Active Substance: IVACAFTOR\LUMACAFTOR
     Indication: CYSTIC FIBROSIS
     Dosage: 2 DOSAGE FORM, BID
     Route: 048
     Dates: start: 20180813, end: 20181025
  21. DOMPERIDONE [Concomitant]
     Active Substance: DOMPERIDONE
     Dosage: 10MG TDS PRN
  22. LEVEMIR [Concomitant]
     Active Substance: INSULIN DETEMIR
     Dosage: ACCORDING TO REQUIREMENTS
     Route: 058
  23. SERTRALINE [Concomitant]
     Active Substance: SERTRALINE HYDROCHLORIDE
     Dosage: 50 MG TABLET, ONE AT NIGHT
  24. SALBUTAMOL [Concomitant]
     Active Substance: ALBUTEROL
     Dosage: UNK
  25. CARBOCISTEINE [Concomitant]
     Active Substance: CARBOCYSTEINE
     Dosage: 750 MG, TID
  26. SERTRALINE [Concomitant]
     Active Substance: SERTRALINE HYDROCHLORIDE
     Dosage: ONE 100 MG TABLET, AT NIGHT
  27. PHYTOMENADIONE [Concomitant]
     Active Substance: PHYTONADIONE
     Dosage: TAKE ONE TABLET DAILY

REACTIONS (1)
  - Forced expiratory volume decreased [Recovered/Resolved]

NARRATIVE: CASE EVENT DATE: 20181008
